FAERS Safety Report 7443367-2 (Version None)
Quarter: 2011Q2

REPORT INFORMATION
  Report Type: 
  Country: None (occurrence: None)
  Receive Date: 20110428
  Receipt Date: 20110413
  Transmission Date: 20111010
  Serious: Yes (Other)
  Sender: FDA-Public Use
  Company Number: US-JNJFOC-20110409665

PATIENT
  Age: 21 Month
  Sex: Female

DRUGS (2)
  1. BENADRYL CHILDREN'S UNSPECIFIED [Suspect]
     Indication: PRODUCT USED FOR UNKNOWN INDICATION
     Route: 048
  2. BENADRYL CHILDREN'S UNSPECIFIED [Suspect]
     Route: 048

REACTIONS (10)
  - STARING [None]
  - WRONG DRUG ADMINISTERED [None]
  - MYDRIASIS [None]
  - PRODUCT QUALITY ISSUE [None]
  - ABNORMAL BEHAVIOUR [None]
  - PARANOIA [None]
  - INSOMNIA [None]
  - HEADACHE [None]
  - AGITATION [None]
  - DYSKINESIA [None]
